FAERS Safety Report 25437528 (Version 1)
Quarter: 2025Q2

REPORT INFORMATION
  Report Type: Report from Study
  Country: US (occurrence: US)
  Receive Date: 20250616
  Receipt Date: 20250616
  Transmission Date: 20250716
  Serious: Yes (Other)
  Sender: JAZZ
  Company Number: US-JAZZ PHARMACEUTICALS-2025-US-012473

PATIENT
  Age: 74 Year
  Sex: Female

DRUGS (15)
  1. XYWAV [Suspect]
     Active Substance: CALCIUM OXYBATE\MAGNESIUM OXYBATE\POTASSIUM OXYBATE\SODIUM OXYBATE
     Indication: Narcolepsy
  2. XYWAV [Suspect]
     Active Substance: CALCIUM OXYBATE\MAGNESIUM OXYBATE\POTASSIUM OXYBATE\SODIUM OXYBATE
     Indication: Cataplexy
  3. XYWAV [Suspect]
     Active Substance: CALCIUM OXYBATE\MAGNESIUM OXYBATE\POTASSIUM OXYBATE\SODIUM OXYBATE
     Indication: Somnolence
  4. GLUCOSAMINE [Concomitant]
     Active Substance: GLUCOSAMINE
     Dates: start: 20030101
  5. CALCIUM + D VOOST [Concomitant]
     Dates: start: 20030101
  6. OMEGA-3 FATTY ACIDS [Concomitant]
     Active Substance: OMEGA-3 FATTY ACIDS
     Dates: start: 20040101
  7. CYMBALTA [Concomitant]
     Active Substance: DULOXETINE HYDROCHLORIDE
     Dates: start: 20110401
  8. TRAMADOL HCL [Concomitant]
     Active Substance: TRAMADOL HYDROCHLORIDE
     Dates: start: 20090101
  9. NEURONTIN [Concomitant]
     Active Substance: GABAPENTIN
     Dates: start: 20120831
  10. ROCALTROL [Concomitant]
     Active Substance: CALCITRIOL
     Dates: start: 20150710
  11. PREDNISONE [Concomitant]
     Active Substance: PREDNISONE
     Dates: start: 20141125
  12. CYANOCOBALAMIN [Concomitant]
     Active Substance: CYANOCOBALAMIN
     Dates: start: 20190601
  13. HERBALS\TURMERIC [Concomitant]
     Active Substance: HERBALS\TURMERIC
     Dates: start: 20190701
  14. PROLIA [Concomitant]
     Active Substance: DENOSUMAB
     Dates: start: 20220901
  15. OCTREOTIDE ACETATE [Concomitant]
     Active Substance: OCTREOTIDE ACETATE
     Dates: start: 20241031

REACTIONS (3)
  - Upper limb fracture [Unknown]
  - Road traffic accident [Unknown]
  - Radius fracture [Unknown]

NARRATIVE: CASE EVENT DATE: 20250508
